FAERS Safety Report 23498326 (Version 6)
Quarter: 2024Q3

REPORT INFORMATION
  Report Type: Spontaneous
  Country: US (occurrence: US)
  Receive Date: 20240207
  Receipt Date: 20240912
  Transmission Date: 20241017
  Serious: No
  Sender: ROCHE
  Company Number: US-ROCHE-3368597

PATIENT
  Age: 35 Year
  Sex: Female
  Weight: 125.19 kg

DRUGS (8)
  1. XOLAIR [Suspect]
     Active Substance: OMALIZUMAB
     Indication: Asthma
     Route: 058
     Dates: start: 202304
  2. XOLAIR [Suspect]
     Active Substance: OMALIZUMAB
     Indication: Embolism venous
  3. XOLAIR [Suspect]
     Active Substance: OMALIZUMAB
     Indication: Asthma
     Route: 058
     Dates: start: 201904
  4. XOLAIR [Suspect]
     Active Substance: OMALIZUMAB
     Indication: Embolism venous
     Route: 058
     Dates: start: 201903
  5. XOLAIR [Suspect]
     Active Substance: OMALIZUMAB
     Indication: Asthma
     Route: 057
     Dates: start: 202305
  6. TAKHZYRO [Concomitant]
     Active Substance: LANADELUMAB-FLYO
  7. FIRAZYR [Concomitant]
     Active Substance: ICATIBANT ACETATE
     Route: 065
  8. TAKHZYRO [Concomitant]
     Active Substance: LANADELUMAB-FLYO
     Route: 065

REACTIONS (9)
  - Abdominal distension [Recovered/Resolved]
  - Hereditary angioedema [Unknown]
  - Abdominal pain [Recovered/Resolved]
  - Oral disorder [Recovered/Resolved]
  - Abdominal pain [Recovered/Resolved]
  - Tongue disorder [Recovered/Resolved]
  - Weight increased [Not Recovered/Not Resolved]
  - Pain in extremity [Unknown]
  - Weight decreased [Unknown]

NARRATIVE: CASE EVENT DATE: 20231123
